FAERS Safety Report 22057140 (Version 1)
Quarter: 2023Q1

REPORT INFORMATION
  Report Type: Spontaneous
  Country: BE (occurrence: BE)
  Receive Date: 20230303
  Receipt Date: 20230303
  Transmission Date: 20230417
  Serious: Yes (Hospitalization, Other)
  Sender: FDA-Public Use
  Company Number: BE-ALKEM LABORATORIES LIMITED-BE-ALKEM-2023-01669

PATIENT
  Age: 47 Year
  Sex: Male

DRUGS (4)
  1. MYCOPHENOLATE MOFETIL [Suspect]
     Active Substance: MYCOPHENOLATE MOFETIL
     Indication: Immunosuppressant drug therapy
     Dosage: 2 GRAM
     Route: 065
  2. TACROLIMUS [Suspect]
     Active Substance: TACROLIMUS
     Indication: Immunosuppressant drug therapy
     Dosage: UNK
     Route: 065
  3. TACROLIMUS [Suspect]
     Active Substance: TACROLIMUS
     Dosage: UNK (TROUGH LEVELS WERE REDUCED TO 8 MICROGRAM/LITER)
     Route: 065
  4. TACROLIMUS [Suspect]
     Active Substance: TACROLIMUS
     Dosage: UNK (REDUCED) (TACROLIMUS TARGET TROUGH LEVELS OF 6 MICROGRAM/LITER)
     Route: 065

REACTIONS (3)
  - Atypical mycobacterial infection [Recovered/Resolved]
  - Lymphadenitis bacterial [Recovered/Resolved]
  - Epstein-Barr virus infection [Unknown]
